FAERS Safety Report 5416836-4 (Version None)
Quarter: 2007Q3

REPORT INFORMATION
  Report Type: 
  Country: None (occurrence: None)
  Receive Date: 20070815
  Receipt Date: 20070815
  Transmission Date: 20080115
  Serious: Yes (Hospitalization)
  Sender: FDA-Public Use
  Company Number: None

PATIENT
  Age: 81 Year
  Sex: Male
  Weight: 65 kg

DRUGS (15)
  1. BEVACIZUMAB 15MG/KG [Suspect]
     Indication: NON-SMALL CELL LUNG CANCER
     Dosage: 1050 MG Q21 DAYS IV
     Route: 042
     Dates: start: 20070726
  2. PEMETREXED 500 MG/M2 [Suspect]
     Indication: NON-SMALL CELL LUNG CANCER
     Dosage: 910 MG Q 21 DAYS IV
     Route: 042
     Dates: start: 20070726
  3. ERLOTINIB 150 MG TABLETS [Suspect]
     Indication: NON-SMALL CELL LUNG CANCER
     Dosage: 150 MG PO ON DAYS 2-15 ONLY EACH CYCLE OF TREATMENT
     Route: 048
     Dates: start: 20070726
  4. PROSCAR [Concomitant]
  5. INDAPAMIDE [Concomitant]
  6. LISINOPRIL [Concomitant]
  7. TERAZOSIN HCL [Concomitant]
  8. LIPITOR [Concomitant]
  9. POTASSIUM CHLORIDE [Concomitant]
  10. VITAMIN B-12 [Concomitant]
  11. VITAMIN B12 [Concomitant]
  12. FOLIC ACID [Concomitant]
  13. DEXAMETHASONE 0.5MG TAB [Concomitant]
  14. COMPAZINE [Concomitant]
  15. MEGACE ES (MEGESTROL ACETATE) [Concomitant]

REACTIONS (8)
  - ANOREXIA [None]
  - ASTHENIA [None]
  - DEHYDRATION [None]
  - FATIGUE [None]
  - HYPERNATRAEMIA [None]
  - HYPOKALAEMIA [None]
  - ORAL INTAKE REDUCED [None]
  - WEIGHT DECREASED [None]
